FAERS Safety Report 6121119-3 (Version None)
Quarter: 2009Q1

REPORT INFORMATION
  Report Type: 
  Country: None (occurrence: None)
  Receive Date: 20090317
  Receipt Date: 20090311
  Transmission Date: 20090719
  Serious: Yes (Hospitalization)
  Sender: FDA-Public Use
  Company Number: A0772528A

PATIENT
  Age: 37 Year
  Sex: Female

DRUGS (3)
  1. PARNATE [Suspect]
     Indication: DEPRESSION
     Dosage: 10MG TWICE PER DAY
     Route: 048
     Dates: start: 20030101
  2. PARNATE [Suspect]
     Dosage: 10MG TWICE PER DAY
     Route: 048
     Dates: end: 20050101
  3. BIRTH CONTROL PILLS [Concomitant]

REACTIONS (9)
  - ADVERSE EVENT [None]
  - ARTHRALGIA [None]
  - ARTHRITIS [None]
  - CHEST PAIN [None]
  - DRY EYE [None]
  - FATIGUE [None]
  - MIGRAINE [None]
  - NEUROPATHY PERIPHERAL [None]
  - PAIN [None]
